FAERS Safety Report 6716388-2 (Version None)
Quarter: 2010Q2

REPORT INFORMATION
  Report Type: 
  Country: None (occurrence: None)
  Receive Date: 20100507
  Receipt Date: 20091009
  Transmission Date: 20101027
  Serious: No
  Sender: FDA-Public Use
  Company Number: JP-BAYER-200910113BYL

PATIENT
  Age: 69 Year
  Sex: Male
  Weight: 74 kg

DRUGS (8)
  1. NEXAVAR [Suspect]
     Indication: RENAL CELL CARCINOMA STAGE IV
     Dosage: TOTAL DAILY DOSE: 800 MG  UNIT DOSE: 200 MG
     Route: 048
     Dates: start: 20081202, end: 20081215
  2. NEXAVAR [Suspect]
     Dosage: UNIT DOSE: 200 MG
     Route: 048
     Dates: start: 20081216, end: 20081226
  3. NEXAVAR [Suspect]
     Dosage: UNIT DOSE: 200 MG
     Route: 048
     Dates: start: 20090106, end: 20090119
  4. NEXAVAR [Suspect]
     Dosage: UNIT DOSE: 200 MG
     Route: 048
     Dates: start: 20090120, end: 20090510
  5. TAGAMET [Concomitant]
     Route: 048
     Dates: start: 20070530
  6. FLIVAS [Concomitant]
     Route: 048
     Dates: start: 20071017
  7. HYPEN [Concomitant]
     Route: 048
     Dates: start: 20081202, end: 20081215
  8. VOLTAREN [Concomitant]
     Route: 048
     Dates: start: 20081216

REACTIONS (6)
  - BLOOD ALKALINE PHOSPHATASE INCREASED [None]
  - BLOOD LACTATE DEHYDROGENASE INCREASED [None]
  - HEPATIC FUNCTION ABNORMAL [None]
  - MUSCLE HAEMORRHAGE [None]
  - PALMAR-PLANTAR ERYTHRODYSAESTHESIA SYNDROME [None]
  - POLLAKIURIA [None]
